FAERS Safety Report 16577433 (Version 1)
Quarter: 2019Q3

REPORT INFORMATION
  Report Type: Spontaneous
  Country: CN (occurrence: CN)
  Receive Date: 20190716
  Receipt Date: 20190716
  Transmission Date: 20191004
  Serious: Yes (Other)
  Sender: FDA-Public Use
  Company Number: CN-PFIZER INC-2019296614

PATIENT
  Age: 4 Year
  Sex: Male
  Weight: 16 kg

DRUGS (1)
  1. METHOTREXATE. [Suspect]
     Active Substance: METHOTREXATE
     Indication: ACUTE LYMPHOCYTIC LEUKAEMIA
     Dosage: 3.5 G, 1X/DAY
     Route: 041
     Dates: start: 20190610, end: 20190611

REACTIONS (4)
  - Overdose [Unknown]
  - Somnolence [Recovering/Resolving]
  - Depressed level of consciousness [Recovering/Resolving]
  - Confusional state [Recovering/Resolving]

NARRATIVE: CASE EVENT DATE: 20190610
